FAERS Safety Report 5260022-8 (Version None)
Quarter: 2007Q1

REPORT INFORMATION
  Report Type: 
  Country: None (occurrence: None)
  Receive Date: 20070309
  Receipt Date: 20060207
  Transmission Date: 20070707
  Serious: No
  Sender: FDA-Public Use
  Company Number: US-GLAXOSMITHKLINE-A0592452A

PATIENT
  Age: 40 Year
  Sex: Male

DRUGS (2)
  1. NICORETTE (MINT) [Suspect]
     Dates: start: 20060127, end: 20060131
  2. NICORETTE [Suspect]
     Dates: start: 20060127, end: 20060131

REACTIONS (5)
  - NERVOUSNESS [None]
  - PRURITUS GENERALISED [None]
  - RASH MACULAR [None]
  - STOMACH DISCOMFORT [None]
  - TREMOR [None]
